FAERS Safety Report 7141200-X (Version None)
Quarter: 2010Q4

REPORT INFORMATION
  Report Type: 
  Country: None (occurrence: None)
  Receive Date: 20101203
  Receipt Date: 20101203
  Transmission Date: 20110411
  Serious: No
  Sender: FDA-Public Use
  Company Number: None

PATIENT
  Age: 46 Year
  Sex: Female
  Weight: 65.7716 kg

DRUGS (1)
  1. LEVAQUIN [Suspect]
     Indication: PNEUMONIA
     Dosage: 1 PILL ONCE A DAY
     Dates: start: 20101128, end: 20101201

REACTIONS (3)
  - BURNING SENSATION [None]
  - MUSCLE TIGHTNESS [None]
  - PARAESTHESIA [None]
